FAERS Safety Report 7948418-4 (Version None)
Quarter: 2011Q4

REPORT INFORMATION
  Report Type: 
  Country: None (occurrence: None)
  Receive Date: 20111123
  Receipt Date: 20111122
  Transmission Date: 20120403
  Serious: Yes (Other)
  Sender: FDA-Public Use
  Company Number: SP05357

PATIENT
  Age: 41 Year
  Sex: Female

DRUGS (1)
  1. MOVIPREP [Suspect]
     Indication: BOWEL PREPARATION
     Dosage: (4 SACHET),ORAL
     Route: 048
     Dates: start: 20111110, end: 20111110

REACTIONS (3)
  - CARDIAC ARREST [None]
  - ALCOHOL USE [None]
  - BLOOD POTASSIUM DECREASED [None]
